FAERS Safety Report 9129334 (Version 1)
Quarter: 2013Q1

REPORT INFORMATION
  Report Type: Spontaneous
  Country: FR (occurrence: FR)
  Receive Date: 20130125
  Receipt Date: 20130125
  Transmission Date: 20140127
  Serious: Yes (Hospitalization)
  Sender: FDA-Public Use
  Company Number: FR-ASTRAZENECA-2013SE03614

PATIENT
  Age: 32403 Day
  Sex: Male

DRUGS (10)
  1. TENORMINE [Suspect]
     Route: 048
     Dates: end: 20120912
  2. CORDARONE [Interacting]
     Route: 048
     Dates: end: 20120912
  3. FLODIL LP [Concomitant]
     Route: 048
  4. SIMVASTATINE [Concomitant]
     Route: 048
  5. ZYLORIC [Concomitant]
     Route: 048
  6. PLAVIX [Concomitant]
     Route: 048
  7. PERINDOPRIL [Concomitant]
     Route: 048
  8. SINTRON [Concomitant]
     Route: 048
  9. LEXOMIL [Concomitant]
     Route: 048
  10. DISCOTRINE [Concomitant]
     Route: 062

REACTIONS (3)
  - Drug interaction [Recovered/Resolved]
  - Bradycardia [Recovered/Resolved]
  - Cardiac failure [Recovered/Resolved]
